FAERS Safety Report 17472693 (Version 1)
Quarter: 2020Q1

REPORT INFORMATION
  Report Type: Spontaneous
  Country: US (occurrence: US)
  Receive Date: 20200227
  Receipt Date: 20200227
  Transmission Date: 20200409
  Serious: Yes (Hospitalization)
  Sender: FDA-Public Use
  Company Number: None

PATIENT
  Age: 72 Year
  Sex: Male

DRUGS (12)
  1. ENBREL [Suspect]
     Active Substance: ETANERCEPT
     Indication: RHEUMATOID ARTHRITIS
     Dosage: ?          OTHER FREQUENCY:Q WK;??
     Route: 058
     Dates: start: 20160816
  2. LISINOPRIL. [Concomitant]
     Active Substance: LISINOPRIL
  3. METOPROLOL TARTRATE. [Concomitant]
     Active Substance: METOPROLOL TARTRATE
  4. METHOTREXATE. [Concomitant]
     Active Substance: METHOTREXATE
  5. BENAZEPRIL [Concomitant]
     Active Substance: BENAZEPRIL HYDROCHLORIDE
  6. TREXALL [Concomitant]
     Active Substance: METHOTREXATE SODIUM
  7. ATORVASTATIN [Concomitant]
     Active Substance: ATORVASTATIN
  8. NAPROXEN. [Concomitant]
     Active Substance: NAPROXEN
  9. AMLODIPINE [Concomitant]
     Active Substance: AMLODIPINE BESYLATE
  10. FAMOTIDINE. [Concomitant]
     Active Substance: FAMOTIDINE
  11. RANITIDINE. [Concomitant]
     Active Substance: RANITIDINE
  12. FOLIC ACID. [Concomitant]
     Active Substance: FOLIC ACID

REACTIONS (2)
  - Therapy cessation [None]
  - Cerebrovascular accident [None]

NARRATIVE: CASE EVENT DATE: 20200124
